FAERS Safety Report 20152283 (Version 2)
Quarter: 2021Q4

REPORT INFORMATION
  Report Type: Spontaneous
  Country: ID (occurrence: ID)
  Receive Date: 20211206
  Receipt Date: 20211215
  Transmission Date: 20220304
  Serious: Yes (Hospitalization, Other)
  Sender: FDA-Public Use
  Company Number: ID-PFIZER INC-202101665971

PATIENT
  Age: 45 Year
  Sex: Male
  Weight: 70 kg

DRUGS (4)
  1. CELEBREX [Suspect]
     Active Substance: CELECOXIB
     Indication: Pain
     Dosage: 200 MG, 2X/DAY
     Route: 048
     Dates: start: 20211110, end: 20211122
  2. LYRICA [Suspect]
     Active Substance: PREGABALIN
     Indication: Nerve compression
     Dosage: 75 MG, 1X/DAY
     Route: 048
     Dates: start: 20211110, end: 20211122
  3. METHYLCOBALAMIN [Suspect]
     Active Substance: METHYLCOBALAMIN
     Indication: Nerve compression
     Dosage: 500 MG, 2X/DAY
     Route: 048
     Dates: start: 20211110, end: 20211122
  4. ZEGAVIT [Concomitant]
     Indication: Vitamin supplementation
     Dosage: UNK, 1X/DAY
     Route: 048
     Dates: start: 20211110

REACTIONS (10)
  - Stevens-Johnson syndrome [Recovering/Resolving]
  - Condition aggravated [Recovering/Resolving]
  - Swelling face [Recovering/Resolving]
  - Lip swelling [Recovering/Resolving]
  - Lip dry [Recovering/Resolving]
  - Blister [Recovering/Resolving]
  - Dysphagia [Recovering/Resolving]
  - Drug hypersensitivity [Recovering/Resolving]
  - Influenza [Recovering/Resolving]
  - Off label use [Recovered/Resolved]

NARRATIVE: CASE EVENT DATE: 20211110
